FAERS Safety Report 18302670 (Version 5)
Quarter: 2021Q1

REPORT INFORMATION
  Report Type: Report from Study
  Country: US (occurrence: US)
  Receive Date: 20200923
  Receipt Date: 20210108
  Transmission Date: 20210419
  Serious: Yes (Hospitalization)
  Sender: FDA-Public Use
  Company Number: US-PFIZER INC-2020356275

PATIENT
  Age: 6 Year
  Sex: Female
  Weight: 18.4 kg

DRUGS (3)
  1. CISPLATIN. [Suspect]
     Active Substance: CISPLATIN
     Dosage: UNK
     Dates: start: 20200831, end: 20200902
  2. VP?16 [Suspect]
     Active Substance: ETOPOSIDE
     Dosage: UNK
     Dates: start: 20200831, end: 20200902
  3. CRIZOTINIB [Suspect]
     Active Substance: CRIZOTINIB
     Indication: NEUROBLASTOMA
     Dosage: 165 MG, TWICE DAILY
     Dates: start: 20200831, end: 20200910

REACTIONS (9)
  - Hypertension [Recovered/Resolved]
  - Hypophosphataemia [Recovered/Resolved]
  - Diarrhoea [Recovered/Resolved]
  - Dehydration [Recovered/Resolved]
  - Acidosis [Recovered/Resolved]
  - Vomiting [Recovered/Resolved]
  - Hypocalcaemia [Recovered/Resolved]
  - Hyponatraemia [Recovered/Resolved]
  - Tinnitus [Recovering/Resolving]

NARRATIVE: CASE EVENT DATE: 20200831
